FAERS Safety Report 15984751 (Version 8)
Quarter: 2019Q4

REPORT INFORMATION
  Report Type: Report from Study
  Country: None (occurrence: ES)
  Receive Date: 20190220
  Receipt Date: 20191014
  Transmission Date: 20200122
  Serious: Yes (Hospitalization, Other)
  Sender: FDA-Public Use
  Company Number: ES-ABBVIE-19S-144-2672055-00

PATIENT
  Age: 77 Year
  Sex: Female

DRUGS (2)
  1. DUODOPA [Suspect]
     Active Substance: CARBIDOPA\LEVODOPA
     Indication: PARKINSON^S DISEASE
     Route: 050
     Dates: start: 20141029
  2. DOGMATIL [Interacting]
     Active Substance: SULPIRIDE
     Indication: DIZZINESS
     Dosage: PUNCTUALLY
     Route: 030
     Dates: start: 20190217

REACTIONS (16)
  - Medical device site laceration [Recovered/Resolved]
  - On and off phenomenon [Recovered/Resolved]
  - Stoma site discharge [Recovered/Resolved]
  - Drug interaction [Unknown]
  - Medical device site laceration [Recovering/Resolving]
  - Stoma site erythema [Recovering/Resolving]
  - Therapeutic product effect incomplete [Not Recovered/Not Resolved]
  - Neck pain [Recovering/Resolving]
  - Dizziness [Not Recovered/Not Resolved]
  - Medical device site injury [Unknown]
  - Gastrointestinal stoma complication [Recovering/Resolving]
  - Nerve compression [Recovering/Resolving]
  - Stoma site discharge [Not Recovered/Not Resolved]
  - Blindness [Not Recovered/Not Resolved]
  - Optic neuritis [Recovering/Resolving]
  - Fungal infection [Recovered/Resolved]

NARRATIVE: CASE EVENT DATE: 2019
